FAERS Safety Report 8171335-4 (Version None)
Quarter: 2012Q1

REPORT INFORMATION
  Report Type: 
  Country: None (occurrence: None)
  Receive Date: 20120228
  Receipt Date: 20120223
  Transmission Date: 20120608
  Serious: Yes (Hospitalization)
  Sender: FDA-Public Use
  Company Number: DE-ABBOTT-11P-062-0884642-00

PATIENT
  Sex: Female
  Weight: 79 kg

DRUGS (7)
  1. PANTOPRAZOLE [Concomitant]
     Indication: PRODUCT USED FOR UNKNOWN INDICATION
  2. ATACAND [Concomitant]
     Indication: PRODUCT USED FOR UNKNOWN INDICATION
  3. AMLODIPINE [Concomitant]
     Indication: PRODUCT USED FOR UNKNOWN INDICATION
  4. HUMIRA [Suspect]
     Indication: PSORIASIS
     Route: 058
     Dates: start: 20110107, end: 20111114
  5. ANTIHYPERTENSIVE MEDICATION NOT SPECIFIED [Concomitant]
     Indication: PRODUCT USED FOR UNKNOWN INDICATION
  6. CORTISONE ACETATE [Concomitant]
     Indication: PRODUCT USED FOR UNKNOWN INDICATION
     Dates: start: 20111101
  7. NEBIVOLOL [Concomitant]
     Indication: PRODUCT USED FOR UNKNOWN INDICATION

REACTIONS (8)
  - LUPUS-LIKE SYNDROME [None]
  - PNEUMONIA [None]
  - PLEURAL EFFUSION [None]
  - CHLAMYDIAL INFECTION [None]
  - PULMONARY OEDEMA [None]
  - FUNGAL INFECTION [None]
  - BLOOD IMMUNOGLOBULIN A INCREASED [None]
  - STOMATITIS [None]
